FAERS Safety Report 7995713-9 (Version None)
Quarter: 2011Q4

REPORT INFORMATION
  Report Type: 
  Country: None (occurrence: None)
  Receive Date: 20111220
  Receipt Date: 20111216
  Transmission Date: 20120403
  Serious: Yes (Other)
  Sender: FDA-Public Use
  Company Number: US-TEVA-314068USA

PATIENT
  Sex: Male

DRUGS (2)
  1. CLARAVIS [Suspect]
     Indication: ACNE
     Dosage: 80 MILLIGRAM;
     Route: 048
     Dates: start: 20110801, end: 20111214
  2. CLARAVIS [Suspect]
     Route: 048
     Dates: start: 20080801, end: 20090101

REACTIONS (4)
  - DISSOCIATIVE IDENTITY DISORDER [None]
  - SUICIDAL IDEATION [None]
  - PSYCHOTIC DISORDER [None]
  - AGGRESSION [None]
